FAERS Safety Report 13705542 (Version 2)
Quarter: 2018Q1

REPORT INFORMATION
  Report Type: Report from Study
  Country: BR (occurrence: BR)
  Receive Date: 20170630
  Receipt Date: 20180115
  Transmission Date: 20180508
  Serious: Yes (Other)
  Sender: FDA-Public Use
  Company Number: PHHY2017BR094489

PATIENT
  Age: 80 Year
  Sex: Male
  Weight: 65 kg

DRUGS (5)
  1. EXELON PATCH [Suspect]
     Active Substance: RIVASTIGMINE
     Dosage: 9.5 MG, QD, PATCH (10 CM2)
     Route: 062
  2. ASA [Concomitant]
     Active Substance: ASPIRIN
     Indication: THROMBOSIS
     Dosage: 2 DF, QD (MORE THAN 1 YEAR)
     Route: 048
  3. EXELON PATCH [Suspect]
     Active Substance: RIVASTIGMINE
     Dosage: 13.3 MG, QD, PATCH (15 CM2)
     Route: 062
     Dates: start: 20170102
  4. PURAN [Concomitant]
     Active Substance: LEVOTHYROXINE SODIUM
     Indication: THYROID DISORDER
     Dosage: 1 DF, QD (FOR MORE THAN HALF A YEAR)
     Route: 048
  5. EXELON PATCH [Suspect]
     Active Substance: RIVASTIGMINE
     Indication: DEMENTIA ALZHEIMER^S TYPE
     Dosage: 4.6 MG, QD, PATCH (5 CM2)
     Route: 062

REACTIONS (4)
  - Disorientation [Unknown]
  - Loss of consciousness [Not Recovered/Not Resolved]
  - Anxiety [Not Recovered/Not Resolved]
  - Agitation [Not Recovered/Not Resolved]

NARRATIVE: CASE EVENT DATE: 2017
